FAERS Safety Report 25114233 (Version 3)
Quarter: 2025Q4

REPORT INFORMATION
  Report Type: Spontaneous
  Country: US (occurrence: US)
  Receive Date: 20250324
  Receipt Date: 20251014
  Transmission Date: 20260118
  Serious: No
  Sender: SANOFI AVENTIS
  Company Number: US-SA-2025SA083098

PATIENT
  Age: 26 Year
  Sex: Male

DRUGS (6)
  1. DUPIXENT [Suspect]
     Active Substance: DUPILUMAB
     Indication: Dermatitis atopic
     Dosage: 300 MG, QOW
     Route: 058
     Dates: start: 20250118
  2. DUPIXENT [Suspect]
     Active Substance: DUPILUMAB
     Indication: Asthma
  3. BENZOYL PEROXIDE\CLINDAMYCIN [Concomitant]
     Active Substance: BENZOYL PEROXIDE\CLINDAMYCIN
     Dosage: UNK
  4. CICLOPIROX [Concomitant]
     Active Substance: CICLOPIROX
     Dosage: UNK
  5. ZYRTEC [Concomitant]
     Active Substance: CETIRIZINE HYDROCHLORIDE
     Dosage: UNK
  6. ALLEGRA D-12 HOUR [Concomitant]
     Active Substance: FEXOFENADINE HYDROCHLORIDE\PSEUDOEPHEDRINE HYDROCHLORIDE

REACTIONS (5)
  - Pigmentation disorder [Unknown]
  - Dyspnoea [Unknown]
  - Skin exfoliation [Unknown]
  - Therapeutic response decreased [Unknown]
  - Drug ineffective [Unknown]

NARRATIVE: CASE EVENT DATE: 20250101
